FAERS Safety Report 23225328 (Version 3)
Quarter: 2023Q4

REPORT INFORMATION
  Report Type: Spontaneous
  Country: TR (occurrence: TR)
  Receive Date: 20231124
  Receipt Date: 20231220
  Transmission Date: 20240109
  Serious: Yes (Death, Hospitalization, Other)
  Sender: FDA-Public Use
  Company Number: TR-BAXTER-2023BAX035775

PATIENT
  Sex: Male

DRUGS (2)
  1. EXTRANEAL [Suspect]
     Active Substance: CALCIUM CHLORIDE\ICODEXTRIN\MAGNESIUM CHLORIDE\SODIUM CHLORIDE\SODIUM LACTATE
     Dosage: UNK
     Route: 033
  2. CALCIUM CL\DEXTROSE\MAGNESIUM CL\SODIUM BICAR\SODIUM CL\SODIUM LACT [Suspect]
     Active Substance: CALCIUM CHLORIDE\DEXTROSE MONOHYDRATE\MAGNESIUM CHLORIDE\SODIUM BICARBONATE\SODIUM CHLORIDE\SODIUM L
     Dosage: UNK
     Route: 033

REACTIONS (13)
  - Brain death [Fatal]
  - Cardiac arrest [Recovered/Resolved]
  - Cerebral haemorrhage [Not Recovered/Not Resolved]
  - Gastrointestinal haemorrhage [Recovered/Resolved]
  - Swelling face [Recovered/Resolved]
  - Blood creatinine increased [Recovering/Resolving]
  - Renal disorder [Unknown]
  - Movement disorder [Unknown]
  - Peripheral swelling [Unknown]
  - Cerebrovascular disorder [Not Recovered/Not Resolved]
  - Infection [Recovering/Resolving]
  - Oedema peripheral [Not Recovered/Not Resolved]
  - Hypotension [Not Recovered/Not Resolved]

NARRATIVE: CASE EVENT DATE: 20231209
